FAERS Safety Report 7066516-7 (Version None)
Quarter: 2010Q4

REPORT INFORMATION
  Report Type: 
  Country: None (occurrence: None)
  Receive Date: 20101027
  Receipt Date: 20100428
  Transmission Date: 20110411
  Serious: No
  Sender: FDA-Public Use
  Company Number: US-WYE-H14427510

PATIENT
  Sex: Female
  Weight: 50.85 kg

DRUGS (14)
  1. PREMPRO [Suspect]
     Indication: MENOPAUSE
     Route: 065
  2. PREMPRO [Suspect]
     Indication: HOT FLUSH
     Dosage: UNSPECIFIED STRENGTH AND FREQUENCY
     Route: 065
     Dates: start: 19900101
  3. PREMPRO [Suspect]
     Indication: NIGHT SWEATS
     Route: 065
     Dates: start: 19900101, end: 20010101
  4. PREMPRO [Suspect]
     Indication: OSTEOPENIA
     Dosage: 0.3 MG; UNSPECIFIED FREQUENCY
     Route: 065
     Dates: start: 20050101
  5. PREMPRO [Suspect]
     Dosage: 0.45 MG; UNSPECIFIED FREQUENCY
     Route: 065
     Dates: start: 20050101
  6. PREMPRO [Suspect]
     Dosage: 0.625 MG; UNSPECIFIED FREQUENCY
     Route: 065
     Dates: start: 20050101
  7. PREMPRO [Suspect]
     Route: 065
     Dates: start: 20050101
  8. PREMPRO [Suspect]
     Route: 065
  9. PREMPRO [Suspect]
     Route: 065
     Dates: start: 20090101
  10. PREMPRO [Suspect]
     Route: 065
     Dates: start: 20100320
  11. LIPITOR [Concomitant]
  12. AZATHIOPRINE [Concomitant]
  13. GABAPENTIN [Suspect]
     Indication: HOT FLUSH
     Route: 065
  14. AZULFIDINE [Concomitant]

REACTIONS (3)
  - BLOOD OESTROGEN DECREASED [None]
  - BREAST CYST [None]
  - DRUG INEFFECTIVE [None]
